FAERS Safety Report 7893659-8 (Version None)
Quarter: 2011Q4

REPORT INFORMATION
  Report Type: 
  Country: None (occurrence: None)
  Receive Date: 20111104
  Receipt Date: 20111028
  Transmission Date: 20120403
  Serious: Yes (Other)
  Sender: FDA-Public Use
  Company Number: DE-GLAXOSMITHKLINE-D0073193A

PATIENT
  Age: 69 Year
  Sex: Male

DRUGS (4)
  1. AZILECT [Suspect]
     Route: 065
  2. REQUIP [Suspect]
     Indication: PARKINSON'S DISEASE
     Dosage: 16MG PER DAY
     Route: 048
  3. METOCLOPRAMIDE HYDROCHLORIDE [Suspect]
     Route: 065
  4. AMANTADINE HCL [Suspect]
     Route: 065

REACTIONS (5)
  - CONFUSIONAL STATE [None]
  - FATIGUE [None]
  - HALLUCINATION [None]
  - PLEUROTHOTONUS [None]
  - PAIN [None]
